FAERS Safety Report 7828157-0 (Version None)
Quarter: 2011Q4

REPORT INFORMATION
  Report Type: 
  Country: None (occurrence: None)
  Receive Date: 20111019
  Receipt Date: 20111006
  Transmission Date: 20120403
  Serious: Yes (Death, Hospitalization)
  Sender: FDA-Public Use
  Company Number: 2011GW000537

PATIENT
  Age: 69 Year
  Sex: Male

DRUGS (2)
  1. BETA BLOCKING AGENTS [Concomitant]
  2. FLECAINIDE ACETATE [Suspect]
     Indication: ATRIAL FIBRILLATION
     Dosage: 200 MG;QD;PO
     Route: 048

REACTIONS (5)
  - VENTRICULAR FIBRILLATION [None]
  - ARTERIOSCLEROSIS CORONARY ARTERY [None]
  - PULMONARY OEDEMA [None]
  - MYOCARDIAL INFARCTION [None]
  - SUDDEN CARDIAC DEATH [None]
